FAERS Safety Report 4722052-1 (Version None)
Quarter: 2005Q3

REPORT INFORMATION
  Report Type: 
  Country: None (occurrence: None)
  Receive Date: 20050722
  Receipt Date: 20050715
  Transmission Date: 20060218
  Serious: Yes (Other)
  Sender: FDA-Public Use
  Company Number: DE-ROCHE-410861

PATIENT
  Age: 43 Year
  Sex: Female

DRUGS (4)
  1. PEGASYS [Suspect]
     Route: 058
  2. PEGASYS [Suspect]
     Route: 058
  3. PEGASYS [Suspect]
     Route: 058
  4. DACARBAZIN [Concomitant]

REACTIONS (1)
  - VERTIGO [None]
